FAERS Safety Report 8626042-8 (Version None)
Quarter: 2012Q3

REPORT INFORMATION
  Report Type: 
  Country: None (occurrence: None)
  Receive Date: 20120827
  Receipt Date: 20120814
  Transmission Date: 20120928
  Serious: Yes (Other)
  Sender: FDA-Public Use
  Company Number: US-FRI-1000037861

PATIENT
  Sex: Female
  Weight: 116.12 kg

DRUGS (1)
  1. VIIBRYD [Suspect]
     Indication: MAJOR DEPRESSION
     Dosage: 40 MG
     Route: 048
     Dates: start: 20120424, end: 20120514

REACTIONS (15)
  - HEART RATE INCREASED [None]
  - HYPERHIDROSIS [None]
  - PETECHIAE [None]
  - COORDINATION ABNORMAL [None]
  - MENTAL STATUS CHANGES [None]
  - MUSCLE TIGHTNESS [None]
  - DEHYDRATION [None]
  - MUSCLE TWITCHING [None]
  - HYPONATRAEMIA [None]
  - NAUSEA [None]
  - DECREASED APPETITE [None]
  - DIARRHOEA [None]
  - AGITATION [None]
  - BLOOD PRESSURE INCREASED [None]
  - MUSCULOSKELETAL STIFFNESS [None]
